FAERS Safety Report 19962666 (Version 3)
Quarter: 2022Q1

REPORT INFORMATION
  Report Type: Spontaneous
  Country: JP (occurrence: JP)
  Receive Date: 20211018
  Receipt Date: 20220128
  Transmission Date: 20220423
  Serious: Yes (Other)
  Sender: FDA-Public Use
  Company Number: JP-NOVARTISPH-NVSJ2021JP014738

PATIENT
  Age: 75 Year
  Sex: Male

DRUGS (2)
  1. BEOVU [Suspect]
     Active Substance: BROLUCIZUMAB-DBLL
     Indication: Age-related macular degeneration
     Dosage: 6 MG
     Route: 031
     Dates: start: 20210825, end: 20210825
  2. BEOVU [Suspect]
     Active Substance: BROLUCIZUMAB-DBLL
     Indication: Polypoidal choroidal vasculopathy

REACTIONS (9)
  - Anterior chamber inflammation [Recovering/Resolving]
  - Keratic precipitates [Recovered/Resolved]
  - Open angle glaucoma [Unknown]
  - Ocular hypertension [Recovered/Resolved]
  - Retinal haemorrhage [Unknown]
  - Iritis [Recovered/Resolved]
  - Visual acuity reduced [Recovered/Resolved]
  - Non-infectious endophthalmitis [Unknown]
  - Anterior chamber cell [Recovering/Resolving]

NARRATIVE: CASE EVENT DATE: 20210826
